FAERS Safety Report 8681330 (Version 2)
Quarter: 2013Q3

REPORT INFORMATION
  Report Type: Spontaneous
  Country: CH (occurrence: None)
  Receive Date: 20120705
  Receipt Date: 20130710
  Transmission Date: 20140515
  Serious: Yes (Hospitalization)
  Sender: FDA-Public Use
  Company Number: 2012153200

PATIENT
  Age: 67 Year
  Sex: Female

DRUGS (11)
  1. METHOTREXATE [Suspect]
     Indication: PSORIATIC ARTHROPATHY
     Route: 048
     Dates: start: 200508, end: 20120404
  2. METHOTREXATE [Suspect]
     Route: 048
     Dates: start: 200508, end: 20120404
  3. FRAGMIN [Suspect]
     Indication: PROPHYLAXIS
     Route: 058
     Dates: start: 201203, end: 20120404
  4. IBUPROFEN [Suspect]
     Indication: BACK DISORDER
     Route: 048
     Dates: start: 201203, end: 20120404
  5. PREDNISONE [Suspect]
     Indication: PSORIATIC ARTHROPATHY
     Route: 048
     Dates: start: 200508
  6. CLARITHROMYCIN [Suspect]
     Indication: PNEUMONIA BACTERIAL
     Route: 048
     Dates: start: 20120323, end: 20120405
  7. ROCEPHIN [Suspect]
     Indication: PNEUMONIA BACTERIAL
     Route: 042
     Dates: start: 20120323, end: 20120405
  8. CIPRALEX [Suspect]
     Route: 048
  9. RAMIPRIL [Concomitant]
  10. PANTOZOL [Concomitant]
  11. CALCIMAGON-D3 (CALCIUM CARBONATE, COLECALCIFEROL) [Concomitant]

REACTIONS (11)
  - Drug interaction [None]
  - Haemorrhagic anaemia [None]
  - Enterocolitis haemorrhagic [None]
  - Pneumonia bacterial [None]
  - Fractured sacrum [None]
  - Stress fracture [None]
  - Cytomegalovirus test positive [None]
  - Diverticulum [None]
  - Haemorrhoids [None]
  - Lower gastrointestinal haemorrhage [None]
  - Back disorder [None]
